FAERS Safety Report 4920081-6 (Version None)
Quarter: 2006Q1

REPORT INFORMATION
  Report Type: 
  Country: None (occurrence: None)
  Receive Date: 20060223
  Receipt Date: 20050830
  Transmission Date: 20060701
  Serious: Yes (Hospitalization)
  Sender: FDA-Public Use
  Company Number: KP-BOEHRINGER INGELHEIM PHARMACEUTICALS, INC.-2005-BP-15271RK

PATIENT
  Sex: Male
  Weight: 55 kg

DRUGS (3)
  1. MICARDIS [Suspect]
     Indication: HYPERTENSION
     Route: 048
     Dates: start: 20040831, end: 20040909
  2. OLDECA (BARNIDIPINE HYDROCHLORIDE) [Concomitant]
     Indication: HYPERTENSION
     Route: 048
     Dates: start: 20040803
  3. LASIX [Concomitant]
     Indication: HYPERTENSION
     Route: 048
     Dates: start: 20040820

REACTIONS (4)
  - DIALYSIS [None]
  - DIZZINESS [None]
  - HYPERKALAEMIA [None]
  - RENAL FAILURE ACUTE [None]
